FAERS Safety Report 7593303-3 (Version None)
Quarter: 2011Q3

REPORT INFORMATION
  Report Type: 
  Country: None (occurrence: None)
  Receive Date: 20110706
  Receipt Date: 20110622
  Transmission Date: 20111222
  Serious: Yes (Other)
  Sender: FDA-Public Use
  Company Number: TR-TYCO HEALTHCARE/MALLINCKRODT-T201101308

PATIENT
  Age: 90 Year
  Sex: Female

DRUGS (5)
  1. DICLOFENAC POTASSIUM [Concomitant]
     Indication: ARTHRALGIA
  2. DRUGS TO FACILITATE BREATHING [Concomitant]
  3. EXALGO [Suspect]
     Indication: CANCER PAIN
     Dosage: 8 MG
     Dates: start: 20110620, end: 20110601
  4. DICLOFENAC POTASSIUM [Concomitant]
     Indication: CANCER PAIN
  5. EXALGO [Suspect]
     Indication: ARTHRALGIA

REACTIONS (5)
  - BLOOD UREA INCREASED [None]
  - BLOOD GLUCOSE INCREASED [None]
  - DYSPNOEA [None]
  - SEDATION [None]
  - RENAL FUNCTION TEST ABNORMAL [None]
